FAERS Safety Report 17834157 (Version 2)
Quarter: 2020Q2

REPORT INFORMATION
  Report Type: Spontaneous
  Country: US (occurrence: US)
  Receive Date: 20200528
  Receipt Date: 20200622
  Transmission Date: 20200714
  Serious: Yes (Hospitalization, Other)
  Sender: FDA-Public Use
  Company Number: US-PIRAMAL ENTERPRISES LIMITED-2020-PEL-000218

PATIENT

DRUGS (1)
  1. GABLOFEN [Suspect]
     Active Substance: BACLOFEN
     Indication: PRODUCT USED FOR UNKNOWN INDICATION
     Dosage: 199.7 MICROGRAM PER DAY
     Route: 037

REACTIONS (4)
  - Staphylococcal infection [Recovered/Resolved]
  - Implant site swelling [Recovered/Resolved]
  - Implant site discharge [Recovered/Resolved]
  - Pyrexia [Recovered/Resolved]
